FAERS Safety Report 7206342-9 (Version None)
Quarter: 2011Q1

REPORT INFORMATION
  Report Type: 
  Country: None (occurrence: None)
  Receive Date: 20110103
  Receipt Date: 20110103
  Transmission Date: 20110831
  Serious: Yes (Hospitalization)
  Sender: FDA-Public Use
  Company Number: PHHO2008FR12165

PATIENT
  Sex: Female
  Weight: 73 kg

DRUGS (2)
  1. AFINITOR [Suspect]
     Indication: CARCINOID TUMOUR
     Dosage: 10 MG, QD
     Dates: start: 20080222, end: 20081001
  2. SANDOSTATIN LAR [Suspect]
     Indication: CARCINOID SYNDROME

REACTIONS (4)
  - HYPOXIA [None]
  - INTERSTITIAL LUNG DISEASE [None]
  - COUGH [None]
  - DYSPNOEA [None]
